FAERS Safety Report 5661126-8 (Version None)
Quarter: 2008Q1

REPORT INFORMATION
  Report Type: 
  Country: None (occurrence: None)
  Receive Date: 20080306
  Receipt Date: 20080225
  Transmission Date: 20080703
  Serious: Yes (Other)
  Sender: FDA-Public Use
  Company Number: 20080047

PATIENT
  Sex: Female

DRUGS (1)
  1. METHYLENE BLUE INJECTION 1% [Suspect]
     Indication: BIOPSY LYMPH GLAND
     Dosage: 5 CC SUBCUTANEOUS
     Route: 058
     Dates: start: 20080211, end: 20080211

REACTIONS (3)
  - BREAST NECROSIS [None]
  - CATHETER SITE INFECTION [None]
  - WOUND INFECTION PSEUDOMONAS [None]
